FAERS Safety Report 7685166-2 (Version None)
Quarter: 2011Q3

REPORT INFORMATION
  Report Type: 
  Country: None (occurrence: None)
  Receive Date: 20110816
  Receipt Date: 20110809
  Transmission Date: 20111222
  Serious: Yes (Hospitalization)
  Sender: FDA-Public Use
  Company Number: JP-AMGEN-JPNSP2011035981

PATIENT
  Age: 56 Year
  Sex: Female
  Weight: 37 kg

DRUGS (3)
  1. LOXONIN [Concomitant]
  2. RINDERON                           /00008501/ [Concomitant]
     Dosage: UNK
  3. ENBREL [Suspect]
     Indication: RHEUMATOID ARTHRITIS
     Dosage: 25 MG, WEEKLY
     Dates: start: 20100303, end: 20100526

REACTIONS (2)
  - PRURITUS [None]
  - DERMATOMYOSITIS [None]
